FAERS Safety Report 17445698 (Version 2)
Quarter: 2020Q1

REPORT INFORMATION
  Report Type: Spontaneous
  Country: CA (occurrence: CA)
  Receive Date: 20200221
  Receipt Date: 20200225
  Transmission Date: 20200409
  Serious: Yes (Hospitalization)
  Sender: FDA-Public Use
  Company Number: CA-PFIZER INC-2020065102

PATIENT
  Age: 36 Year
  Sex: Male

DRUGS (1)
  1. XYNTHA [Suspect]
     Active Substance: ANTIHEMOPHILIC FACTOR, HUMAN RECOMBINANT RESIDUES 743-1636 DELETED
     Indication: FACTOR VIII DEFICIENCY
     Dosage: 2000 IU, UNK
     Route: 042
     Dates: start: 20200213

REACTIONS (2)
  - Abdominal pain upper [Unknown]
  - Abdominal abscess [Unknown]
